FAERS Safety Report 10703681 (Version 1)
Quarter: 2015Q1

REPORT INFORMATION
  Report Type: Spontaneous
  Country: US (occurrence: None)
  Receive Date: 20150108
  Receipt Date: 20150108
  Transmission Date: 20150721
  Serious: No
  Sender: FDA-Public Use
  Company Number: PR 2829

PATIENT
  Sex: Male

DRUGS (4)
  1. COSOPT [Suspect]
     Active Substance: DORZOLAMIDE HYDROCHLORIDE\TIMOLOL MALEATE
     Indication: PRODUCT USED FOR UNKNOWN INDICATION
     Dosage: 1 DROP BOTH EYES BID
  2. ACULAR(KETOROLAC TROMETHAMINE) [Concomitant]
  3. LUMIGAN(BIMATOPROST) [Concomitant]
  4. ALPHAGAN(BRIMONIDIE TATRATE) [Concomitant]

REACTIONS (4)
  - Cataract operation [None]
  - Blood pressure increased [None]
  - Heart rate decreased [None]
  - Retinal vein occlusion [None]
